FAERS Safety Report 16512268 (Version 1)
Quarter: 2019Q3

REPORT INFORMATION
  Report Type: Spontaneous
  Country: US (occurrence: US)
  Receive Date: 20190702
  Receipt Date: 20190702
  Transmission Date: 20191004
  Serious: No
  Sender: FDA-Public Use
  Company Number: US-BAYER-2019-124196

PATIENT
  Sex: Male

DRUGS (3)
  1. SINGULAIR [Suspect]
     Active Substance: MONTELUKAST SODIUM
     Indication: SINUSITIS
     Dosage: 1 DF, QD
     Route: 048
     Dates: start: 201902, end: 201903
  2. SINGULAIR [Suspect]
     Active Substance: MONTELUKAST SODIUM
     Indication: MIDDLE EAR EFFUSION
  3. CLARITIN [Suspect]
     Active Substance: LORATADINE
     Route: 048
     Dates: start: 1999, end: 1999

REACTIONS (7)
  - Nausea [Recovered/Resolved]
  - Sinusitis [Unknown]
  - Swelling face [Unknown]
  - Panic disorder [Recovered/Resolved]
  - Middle ear effusion [Unknown]
  - Product use in unapproved indication [Unknown]
  - Otorrhoea [Unknown]

NARRATIVE: CASE EVENT DATE: 1999
